FAERS Safety Report 21097600 (Version 2)
Quarter: 2022Q3

REPORT INFORMATION
  Report Type: Spontaneous
  Country: US (occurrence: US)
  Receive Date: 20220719
  Receipt Date: 20220824
  Transmission Date: 20221027
  Serious: No
  Sender: FDA-Public Use
  Company Number: US-ORGANON-O2207USA001135

PATIENT
  Age: 20 Year
  Sex: Female
  Weight: 79.365 kg

DRUGS (1)
  1. NEXPLANON [Suspect]
     Active Substance: ETONOGESTREL
     Indication: Contraception
     Dosage: 1 IMPANT OF 68 MG IN LEFT UPPER ARM
     Route: 059
     Dates: start: 20200220, end: 20220620

REACTIONS (6)
  - Heavy menstrual bleeding [Unknown]
  - Device breakage [Recovered/Resolved]
  - Implant site pain [Unknown]
  - Body mass index increased [Unknown]
  - Device placement issue [Recovered/Resolved]
  - Complication of device removal [Recovered/Resolved]

NARRATIVE: CASE EVENT DATE: 20200201
